FAERS Safety Report 11512255 (Version 2)
Quarter: 2015Q4

REPORT INFORMATION
  Report Type: Report from Study
  Country: US (occurrence: US)
  Receive Date: 20150916
  Receipt Date: 20151021
  Transmission Date: 20160304
  Serious: No
  Sender: FDA-Public Use
  Company Number: US-AMGEN-USASL2015093260

PATIENT
  Age: 63 Year
  Sex: Female

DRUGS (1)
  1. ENBREL [Suspect]
     Active Substance: ETANERCEPT
     Indication: RHEUMATOID ARTHRITIS
     Dosage: 50 MG, QWK
     Route: 058
     Dates: start: 201502, end: 20150728

REACTIONS (8)
  - Injection site rash [Recovered/Resolved]
  - Injection site pruritus [Unknown]
  - Injection site warmth [Unknown]
  - Rash pruritic [Unknown]
  - Drug hypersensitivity [Not Recovered/Not Resolved]
  - Pruritus generalised [Unknown]
  - Injection site swelling [Unknown]
  - Injection site erythema [Unknown]

NARRATIVE: CASE EVENT DATE: 2015
